FAERS Safety Report 5385391-X (Version None)
Quarter: 2007Q3

REPORT INFORMATION
  Report Type: 
  Country: None (occurrence: None)
  Receive Date: 20070712
  Receipt Date: 20070703
  Transmission Date: 20080115
  Serious: Yes (Death, Hospitalization)
  Sender: FDA-Public Use
  Company Number: US-ROCHE-505131

PATIENT
  Age: 5 Year
  Sex: Female
  Weight: 21.8 kg

DRUGS (4)
  1. CYTOVENE [Suspect]
     Indication: HUMAN HERPESVIRUS 6 INFECTION
     Dosage: THERAPY FOR PREVENTION
     Route: 065
     Dates: start: 20060501
  2. CYTOVENE [Suspect]
     Dosage: THERAPY TO TREAT HHV6 VIRUS
     Route: 065
     Dates: start: 20060901
  3. CYTOVENE [Suspect]
     Dosage: TO TREAT RECURRENCE OF HHV6 VIRUS IN THE SPINAL FLUID
     Route: 065
     Dates: start: 20070101
  4. UNSPECIFIED DRUG [Concomitant]

REACTIONS (5)
  - ABDOMINAL PAIN UPPER [None]
  - HAEMORRHAGE [None]
  - HUMAN HERPESVIRUS 6 INFECTION [None]
  - IMMOBILE [None]
  - VENOOCCLUSIVE DISEASE [None]
